FAERS Safety Report 8352602-8 (Version None)
Quarter: 2012Q2

REPORT INFORMATION
  Report Type: 
  Country: None (occurrence: None)
  Receive Date: 20120511
  Receipt Date: 20120503
  Transmission Date: 20120825
  Serious: Yes (Other)
  Sender: FDA-Public Use
  Company Number: US-BAYER-2012-043488

PATIENT
  Sex: Female

DRUGS (2)
  1. MIRENA [Suspect]
     Dosage: 20 MCG/24HR, CONT
  2. ANTITHROMBOTIC AGENTS [Concomitant]
     Indication: DEEP VEIN THROMBOSIS
     Dosage: UNK

REACTIONS (1)
  - HAEMOLYTIC ANAEMIA [None]
